FAERS Safety Report 6786188-6 (Version None)
Quarter: 2010Q2

REPORT INFORMATION
  Report Type: 
  Country: None (occurrence: None)
  Receive Date: 20100623
  Receipt Date: 20100616
  Transmission Date: 20101027
  Serious: Yes (Hospitalization)
  Sender: FDA-Public Use
  Company Number: FR-SANOFI-AVENTIS-2010SA012353

PATIENT
  Sex: Male
  Weight: 75 kg

DRUGS (9)
  1. PLAVIX [Suspect]
     Indication: MYOCARDIAL INFARCTION
     Route: 048
     Dates: start: 20081201, end: 20100222
  2. PLAVIX [Suspect]
     Route: 048
     Dates: start: 20081201, end: 20100222
  3. TAHOR [Concomitant]
     Indication: MYOCARDIAL INFARCTION
     Route: 048
  4. TRIATEC [Concomitant]
     Indication: MYOCARDIAL INFARCTION
     Route: 048
  5. NEBIVOLOL HCL [Concomitant]
     Indication: MYOCARDIAL INFARCTION
     Route: 048
  6. KARDEGIC [Concomitant]
     Indication: MYOCARDIAL INFARCTION
     Route: 048
  7. IKOREL [Concomitant]
     Route: 048
     Dates: end: 20100301
  8. ALFUZOSIN HCL [Concomitant]
     Indication: PROSTATIC ADENOMA
     Route: 048
  9. MOPRAL [Concomitant]
     Route: 048

REACTIONS (2)
  - PURPURA [None]
  - SKIN NECROSIS [None]
